FAERS Safety Report 9935270 (Version 1)
Quarter: 2014Q1

REPORT INFORMATION
  Report Type: Spontaneous
  Country: US (occurrence: US)
  Receive Date: 20140228
  Receipt Date: 20140228
  Transmission Date: 20141002
  Serious: Yes (Hospitalization, Other)
  Sender: FDA-Public Use
  Company Number: US-009507513-1402USA009840

PATIENT
  Age: 78 Year
  Sex: Male
  Weight: 72.56 kg

DRUGS (16)
  1. PROVENTIL [Suspect]
  2. PURITANS PRIDE SOY LECITHIN [Concomitant]
     Indication: ROUTINE HEALTH MAINTENANCE
     Dosage: UNK, QD
     Route: 048
  3. PURITANS PRIDE OMEGA 3 FISH OIL [Concomitant]
     Indication: ROUTINE HEALTH MAINTENANCE
     Dosage: UNK, QD
     Route: 048
  4. PURITANS PRIDE RED YEAST RICE [Concomitant]
     Indication: ROUTINE HEALTH MAINTENANCE
     Dosage: UNK, QD
     Route: 048
  5. PURITANS PRIDE CINNAMON [Concomitant]
     Indication: ROUTINE HEALTH MAINTENANCE
     Route: 048
  6. NATURES BOUNTY DHEA [Concomitant]
     Indication: ROUTINE HEALTH MAINTENANCE
     Route: 048
  7. PURITANS PRIDE VITAMIN C [Concomitant]
     Indication: ROUTINE HEALTH MAINTENANCE
     Route: 048
  8. PURITANS PRIDE VITAMIN D [Concomitant]
     Indication: ROUTINE HEALTH MAINTENANCE
     Route: 048
  9. PURITANS PRIDE GLUCOSAMINE CHONDROITIN [Concomitant]
     Indication: ROUTINE HEALTH MAINTENANCE
     Dosage: UNK, QD
     Route: 048
  10. PURITANS PRIDE Q-ZEN COENZYME Q10 [Concomitant]
     Indication: ROUTINE HEALTH MAINTENANCE
     Dosage: UNK, QD
     Route: 048
  11. PURITANS PRIDE FLAXSEED OIL [Concomitant]
     Indication: ROUTINE HEALTH MAINTENANCE
     Dosage: UNK, QD
     Route: 048
  12. NATURES BOUNTY DHEA [Concomitant]
     Indication: ROUTINE HEALTH MAINTENANCE
  13. GARLIC [Concomitant]
     Dosage: UNK, QD
  14. KRILL OIL [Concomitant]
     Dosage: UNK, QD
  15. MAGNESIUM (UNSPECIFIED) [Concomitant]
     Dosage: UNK, QD
  16. PROSTENE [Concomitant]

REACTIONS (11)
  - Coronary artery bypass [Recovered/Resolved]
  - Cardiac operation [Recovered/Resolved]
  - Heart rate irregular [Recovered/Resolved]
  - Arteriosclerosis coronary artery [Recovered/Resolved]
  - Arterial graft [Recovered/Resolved]
  - Vascular graft [Recovered/Resolved]
  - Obstructive airways disorder [Unknown]
  - Sinus rhythm [Not Recovered/Not Resolved]
  - Angina unstable [Unknown]
  - Atrial fibrillation [Unknown]
  - Catheterisation cardiac [Recovered/Resolved]
